FAERS Safety Report 8135483-7 (Version None)
Quarter: 2012Q1

REPORT INFORMATION
  Report Type: 
  Country: None (occurrence: None)
  Receive Date: 20120214
  Receipt Date: 20120210
  Transmission Date: 20120608
  Serious: Yes (Hospitalization)
  Sender: FDA-Public Use
  Company Number: GB-ROCHE-1039392

PATIENT
  Sex: Female
  Weight: 77 kg

DRUGS (2)
  1. METHOTREXATE [Concomitant]
     Dates: start: 20110923
  2. MABTHERA [Suspect]
     Indication: RHEUMATOID ARTHRITIS
     Dosage: LAST DOSE PRIOR TO SAE: 23/AUG/2011
     Route: 065
     Dates: start: 20110809

REACTIONS (1)
  - CHEST PAIN [None]
